FAERS Safety Report 14995294 (Version 1)
Quarter: 2018Q2

REPORT INFORMATION
  Report Type: Spontaneous
  Country: US (occurrence: US)
  Receive Date: 20180611
  Receipt Date: 20180611
  Transmission Date: 20180711
  Serious: No
  Sender: FDA-Public Use
  Company Number: US-SA-2018SA053292

PATIENT
  Age: 65 Year
  Sex: Male
  Weight: 107.48 kg

DRUGS (5)
  1. PRAMIPEXOLE. [Concomitant]
     Active Substance: PRAMIPEXOLE
     Dosage: UNK UNK,UNK
     Route: 048
  2. AUBAGIO [Suspect]
     Active Substance: TERIFLUNOMIDE
     Indication: MULTIPLE SCLEROSIS
     Dosage: 1 DF,QD
     Route: 048
     Dates: start: 20171101
  3. AUBAGIO [Suspect]
     Active Substance: TERIFLUNOMIDE
     Dosage: 1 DF,QD
     Route: 048
  4. LOSARTAN. [Concomitant]
     Active Substance: LOSARTAN
     Dosage: UNK UNK,UNK
     Route: 048
  5. ERGOCALCIFEROL. [Concomitant]
     Active Substance: ERGOCALCIFEROL
     Dosage: UNK UNK,UNK
     Route: 048

REACTIONS (3)
  - Blood pressure diastolic increased [Unknown]
  - Drug dose omission [Unknown]
  - Hypertension [Not Recovered/Not Resolved]

NARRATIVE: CASE EVENT DATE: 20171227
